FAERS Safety Report 20708257 (Version 3)
Quarter: 2022Q2

REPORT INFORMATION
  Report Type: Report from Study
  Country: US (occurrence: US)
  Receive Date: 20220414
  Receipt Date: 20220613
  Transmission Date: 20220720
  Serious: Yes (Hospitalization)
  Sender: FDA-Public Use
  Company Number: US-TEVA-2022-US-2026150

PATIENT
  Age: 13 Year
  Sex: Male
  Weight: 87.9 kg

DRUGS (8)
  1. VINCRISTINE [Suspect]
     Active Substance: VINCRISTINE
     Indication: Acute lymphocytic leukaemia
     Dosage: 2 MILLIGRAM, DAYS 1, 29, 57
     Route: 042
     Dates: start: 20210215
  2. PREDNISONE [Suspect]
     Active Substance: PREDNISONE
     Indication: Acute lymphocytic leukaemia
     Route: 048
     Dates: start: 20210215
  3. METHOTREXATE [Suspect]
     Active Substance: METHOTREXATE
     Indication: Acute lymphocytic leukaemia
     Route: 037
     Dates: start: 20220222
  4. METHOTREXATE [Suspect]
     Active Substance: METHOTREXATE
     Indication: Acute lymphocytic leukaemia
     Route: 048
     Dates: start: 20220210
  5. METHOTREXATE [Suspect]
     Active Substance: METHOTREXATE
     Route: 048
     Dates: start: 20220421
  6. MERCAPTOPURINE [Suspect]
     Active Substance: MERCAPTOPURINE
     Indication: Acute lymphocytic leukaemia
     Dosage: 150 MG MONDAY-SATURDAY, 125 MG SUNDAY;
     Route: 048
     Dates: start: 20210408
  7. MERCAPTOPURINE [Suspect]
     Active Substance: MERCAPTOPURINE
     Route: 048
     Dates: start: 20220421
  8. RUXOLITINIB [Suspect]
     Active Substance: RUXOLITINIB
     Indication: Acute lymphocytic leukaemia
     Dosage: 55 MILLIGRAM DAYS 1-14, 29-42, 57-70
     Route: 048
     Dates: start: 20210408

REACTIONS (2)
  - Febrile neutropenia [Not Recovered/Not Resolved]
  - Klebsiella sepsis [Recovering/Resolving]

NARRATIVE: CASE EVENT DATE: 20220318
